FAERS Safety Report 10055806 (Version 3)
Quarter: 2014Q2

REPORT INFORMATION
  Report Type: Report from Study
  Country: US (occurrence: US)
  Receive Date: 20140403
  Receipt Date: 20140505
  Transmission Date: 20141212
  Serious: Yes (Other)
  Sender: FDA-Public Use
  Company Number: PHEH2014US001824

PATIENT
  Age: 34 Year
  Sex: Female
  Weight: 63.49 kg

DRUGS (2)
  1. GILENYA [Suspect]
     Indication: MULTIPLE SCLEROSIS
     Dosage: 0.5 MG, QD
     Route: 048
     Dates: start: 20140123
  2. SYNTHROID [Concomitant]
     Indication: HYPOTHYROIDISM

REACTIONS (10)
  - Irritable bowel syndrome [Recovering/Resolving]
  - Constipation [Recovering/Resolving]
  - Heart rate decreased [Recovering/Resolving]
  - Fatigue [Recovering/Resolving]
  - Disorientation [Unknown]
  - Acne [Not Recovered/Not Resolved]
  - Abdominal pain [Recovering/Resolving]
  - Dizziness [Unknown]
  - Asthenia [Recovering/Resolving]
  - Headache [Recovering/Resolving]
